FAERS Safety Report 6477761-3 (Version None)
Quarter: 2009Q4

REPORT INFORMATION
  Report Type: 
  Country: None (occurrence: None)
  Receive Date: 20091207
  Receipt Date: 20091127
  Transmission Date: 20100525
  Serious: Yes (Other)
  Sender: FDA-Public Use
  Company Number: DE-PFIZER INC-2009282203

PATIENT
  Sex: Female

DRUGS (1)
  1. LYRICA [Suspect]
     Indication: POLYNEUROPATHY
     Dosage: UNK
     Route: 048
     Dates: start: 20090420

REACTIONS (5)
  - GENERAL PHYSICAL HEALTH DETERIORATION [None]
  - PAIN [None]
  - PERSONALITY CHANGE [None]
  - RESTLESSNESS [None]
  - SALIVARY HYPERSECRETION [None]
